FAERS Safety Report 17763089 (Version 2)
Quarter: 2020Q2

REPORT INFORMATION
  Report Type: Report from Study
  Country: None (occurrence: CH)
  Receive Date: 20200509
  Receipt Date: 20200528
  Transmission Date: 20200714
  Serious: Yes (Hospitalization)
  Sender: FDA-Public Use
  Company Number: CH-ABBVIE-20K-151-3349033-00

PATIENT
  Sex: Female
  Weight: 55 kg

DRUGS (3)
  1. DUODOPA [Suspect]
     Active Substance: CARBIDOPA\LEVODOPA
     Dosage: MD: 12 ML, CRD: 3.9 ML/H, CONTINUOUS RATE NIGHT: 0 ML/H, EXTRA DOSE: 3 ML, 16 H THERAPY
     Route: 050
     Dates: start: 20160511, end: 20171205
  2. DUODOPA [Suspect]
     Active Substance: CARBIDOPA\LEVODOPA
     Dosage: MD: 12 ML, CRD: 3.7 ML/H, CRN: 0 ML/H, ED: 3 ML, ED BLOCKING TIME: 1 H, LL: LOCK LEVEL 0
     Route: 050
     Dates: start: 20171205
  3. DUODOPA [Suspect]
     Active Substance: CARBIDOPA\LEVODOPA
     Indication: PARKINSON^S DISEASE
     Route: 050
     Dates: start: 20160329, end: 20160511

REACTIONS (3)
  - Device occlusion [Recovered/Resolved]
  - Constipation [Not Recovered/Not Resolved]
  - Intestinal prolapse [Not Recovered/Not Resolved]
